FAERS Safety Report 10015805 (Version 1)
Quarter: 2014Q1

REPORT INFORMATION
  Report Type: Spontaneous
  Country: US (occurrence: US)
  Receive Date: 20140317
  Receipt Date: 20140317
  Transmission Date: 20141002
  Serious: Yes (Death, Hospitalization)
  Sender: FDA-Public Use
  Company Number: US-GLAXOSMITHKLINE-A1064334A

PATIENT
  Age: 80 Year
  Sex: Male

DRUGS (9)
  1. ADVAIR [Suspect]
     Indication: CHRONIC OBSTRUCTIVE PULMONARY DISEASE
     Dosage: 1PUFF TWICE PER DAY
     Route: 055
  2. CENTRUM SILVER [Concomitant]
  3. OMEPRAZOLE [Concomitant]
  4. SOTALOL [Concomitant]
  5. FUROSEMIDE [Concomitant]
  6. LISINOPRIL [Concomitant]
  7. SIMVASTATIN [Concomitant]
  8. DILTIAZEM [Concomitant]
  9. PRADAXA [Concomitant]

REACTIONS (3)
  - Chronic obstructive pulmonary disease [Fatal]
  - Cardiac failure congestive [Fatal]
  - Atrial fibrillation [Fatal]
